FAERS Safety Report 8021548-7 (Version None)
Quarter: 2011Q4

REPORT INFORMATION
  Report Type: 
  Country: None (occurrence: None)
  Receive Date: 20111230
  Receipt Date: 20111219
  Transmission Date: 20120403
  Serious: Yes (Hospitalization)
  Sender: FDA-Public Use
  Company Number: MPS1-1000587

PATIENT
  Age: 3 Year
  Sex: Male
  Weight: 12.8 kg

DRUGS (1)
  1. ALDURAZYME [Suspect]
     Indication: MUCOPOLYSACCHARIDOSIS I
     Dosage: INTRAVENOUS
     Route: 042
     Dates: start: 20100526

REACTIONS (11)
  - PAPULE [None]
  - SOMNOLENCE [None]
  - SENSORY DISTURBANCE [None]
  - COUGH [None]
  - DROOLING [None]
  - LIP SWELLING [None]
  - SKIN TEST POSITIVE [None]
  - AGITATION [None]
  - INFUSION RELATED REACTION [None]
  - OEDEMA PERIPHERAL [None]
  - EYELID OEDEMA [None]
